FAERS Safety Report 11573721 (Version 2)
Quarter: 2015Q4

REPORT INFORMATION
  Report Type: Spontaneous
  Country: US (occurrence: US)
  Receive Date: 20150929
  Receipt Date: 20151006
  Transmission Date: 20160304
  Serious: No
  Sender: FDA-Public Use
  Company Number: US-009507513-1509USA014613

PATIENT
  Age: 41 Year
  Sex: Male

DRUGS (5)
  1. PREDNISOLONE. [Suspect]
     Active Substance: PREDNISOLONE
     Indication: CHEMOTHERAPY
  2. DOXORUBICIN [Suspect]
     Active Substance: DOXORUBICIN
     Indication: HUMAN T-CELL LYMPHOTROPIC VIRUS TYPE I INFECTION
  3. HEXADROL [Suspect]
     Active Substance: DEXAMETHASONE
     Indication: HUMAN T-CELL LYMPHOTROPIC VIRUS TYPE I INFECTION
     Route: 048
  4. VINCRISTINE SULFATE. [Suspect]
     Active Substance: VINCRISTINE SULFATE
     Indication: HUMAN T-CELL LYMPHOTROPIC VIRUS TYPE I INFECTION
  5. CYCLOPHOSPHAMIDE. [Suspect]
     Active Substance: CYCLOPHOSPHAMIDE
     Indication: HUMAN T-CELL LYMPHOTROPIC VIRUS TYPE I INFECTION

REACTIONS (1)
  - Drug ineffective [Unknown]
